FAERS Safety Report 6147374-1 (Version None)
Quarter: 2009Q2

REPORT INFORMATION
  Report Type: 
  Country: None (occurrence: None)
  Receive Date: 20090408
  Receipt Date: 20090330
  Transmission Date: 20091009
  Serious: Yes (Death, Other)
  Sender: FDA-Public Use
  Company Number: US-PFIZER INC-2009185087

PATIENT
  Age: 16 Year
  Sex: Female

DRUGS (2)
  1. XANAX [Suspect]
     Dosage: UNK
     Route: 055
     Dates: start: 20090214, end: 20090215
  2. OXYMORPHONE [Suspect]
     Dosage: UNK
     Route: 055
     Dates: start: 20090214, end: 20090215

REACTIONS (4)
  - DRUG ABUSE [None]
  - DRUG TOXICITY [None]
  - INCORRECT ROUTE OF DRUG ADMINISTRATION [None]
  - INTENTIONAL DRUG MISUSE [None]
